FAERS Safety Report 14381723 (Version 1)
Quarter: 2018Q1

REPORT INFORMATION
  Report Type: Other
  Country: US (occurrence: US)
  Receive Date: 20180112
  Receipt Date: 20180112
  Transmission Date: 20180509
  Serious: Yes (Death)
  Sender: FDA-Public Use
  Company Number: US-GENUS_LIFESCIENCES-USA-POI0580201800067

PATIENT
  Age: 82 Year
  Sex: Male

DRUGS (5)
  1. DILTIAZEM. [Suspect]
     Active Substance: DILTIAZEM
     Dates: end: 2016
  2. LEVOLET (LEVOTHYROXINE) [Suspect]
     Active Substance: LEVOTHYROXINE
     Dates: end: 2016
  3. LISINOPRIL. [Suspect]
     Active Substance: LISINOPRIL
     Dates: end: 2016
  4. NAPROXEN. [Suspect]
     Active Substance: NAPROXEN
     Dates: end: 2016
  5. WARFARIN [Suspect]
     Active Substance: WARFARIN
     Dates: end: 2016

REACTIONS (1)
  - Completed suicide [Fatal]

NARRATIVE: CASE EVENT DATE: 2016
